FAERS Safety Report 5960324-3 (Version None)
Quarter: 2008Q4

REPORT INFORMATION
  Report Type: 
  Country: None (occurrence: None)
  Receive Date: 20081120
  Receipt Date: 20081111
  Transmission Date: 20090506
  Serious: Yes (Death, Hospitalization)
  Sender: FDA-Public Use
  Company Number: NL-SANOFI-SYNTHELABO-F01200801708

PATIENT
  Sex: Female

DRUGS (3)
  1. AVASTIN [Suspect]
     Dosage: 500 MG
     Route: 041
     Dates: start: 20080519, end: 20080519
  2. XELODA [Suspect]
     Dosage: DAY 1-14, Q3W 3500 MG
     Route: 048
     Dates: start: 20080519, end: 20080601
  3. ELOXATIN [Suspect]
     Indication: COLORECTAL CANCER METASTATIC
     Dosage: 225 MG
     Route: 041
     Dates: start: 20080519, end: 20080519

REACTIONS (4)
  - DISEASE PROGRESSION [None]
  - FATIGUE [None]
  - MALAISE [None]
  - PYREXIA [None]
